FAERS Safety Report 5421438-X (Version None)
Quarter: 2007Q3

REPORT INFORMATION
  Report Type: 
  Country: None (occurrence: None)
  Receive Date: 20070821
  Receipt Date: 20070801
  Transmission Date: 20080115
  Serious: No
  Sender: FDA-Public Use
  Company Number: US-BOEHRINGER INGELHEIM PHARMACEUTICALS, INC.-2007-BP-18436BP

PATIENT
  Age: 53 Year
  Sex: Female

DRUGS (1)
  1. MICARDIS HCT [Suspect]
     Indication: HYPERTENSION
     Route: 048
     Dates: start: 20070101

REACTIONS (4)
  - ASTHENIA [None]
  - DYSPNOEA [None]
  - PAIN IN EXTREMITY [None]
  - SENSATION OF HEAVINESS [None]
